FAERS Safety Report 9256928 (Version 1)
Quarter: 2013Q2

REPORT INFORMATION
  Report Type: Spontaneous
  Country: CA (occurrence: None)
  Receive Date: 20130423
  Receipt Date: 20130423
  Transmission Date: 20140414
  Serious: Yes (Hospitalization)
  Sender: FDA-Public Use
  Company Number: 1682223

PATIENT
  Age: 80 Year
  Sex: Female

DRUGS (8)
  1. MORPHINE SULPHATE [Suspect]
     Indication: BACK PAIN
  2. HYDROMORPHONE [Suspect]
     Indication: BACK PAIN
     Route: 048
  3. ACETAMINOPHEN /CODEINE PHOSPHATE [Suspect]
     Indication: BACK PAIN
  4. HYDROMORPHONE [Suspect]
     Indication: BACK PAIN
     Route: 048
  5. OSMOTICALLY ACTING LAXATIVES [Concomitant]
  6. STOOL SOFTENER [Concomitant]
  7. OTHER DRUGS FOR FUNCTIONAL BOWEL DISORDERS [Concomitant]
  8. LAXATIVES [Concomitant]

REACTIONS (3)
  - Colonic pseudo-obstruction [None]
  - Inadequate analgesia [None]
  - Constipation [None]
